FAERS Safety Report 25749123 (Version 2)
Quarter: 2025Q3

REPORT INFORMATION
  Report Type: Spontaneous
  Country: TW (occurrence: TW)
  Receive Date: 20250902
  Receipt Date: 20250912
  Transmission Date: 20251020
  Serious: Yes (Hospitalization)
  Sender: EMD SERONO INC
  Company Number: TW-Merck Healthcare KGaA-2025044024

PATIENT
  Age: 79 Year
  Sex: Male

DRUGS (7)
  1. TEPMETKO [Suspect]
     Active Substance: TEPOTINIB HYDROCHLORIDE
     Indication: Non-small cell lung cancer
     Dates: start: 20240729
  2. TRAMADOL [Concomitant]
     Active Substance: TRAMADOL
     Indication: Product used for unknown indication
  3. ACETAMINOPHEN [Concomitant]
     Active Substance: ACETAMINOPHEN
     Indication: Product used for unknown indication
  4. FURSULTIAMINE [Concomitant]
     Active Substance: FURSULTIAMINE
     Indication: Product used for unknown indication
  5. METHOCARBAMOL [Concomitant]
     Active Substance: METHOCARBAMOL
     Indication: Product used for unknown indication
  6. KETOROLAC [Concomitant]
     Active Substance: KETOROLAC TROMETHAMINE
     Indication: Product used for unknown indication
  7. FENTANYL [Concomitant]
     Active Substance: FENTANYL
     Indication: Product used for unknown indication

REACTIONS (4)
  - Iliac vein stenosis [Not Recovered/Not Resolved]
  - May-Thurner syndrome [Not Recovered/Not Resolved]
  - Deep vein thrombosis [Not Recovered/Not Resolved]
  - Off label use [Unknown]

NARRATIVE: CASE EVENT DATE: 20250818
